FAERS Safety Report 23555896 (Version 2)
Quarter: 2024Q2

REPORT INFORMATION
  Report Type: Report from Study
  Country: CA (occurrence: CA)
  Receive Date: 20240222
  Receipt Date: 20240419
  Transmission Date: 20240716
  Serious: Yes (Hospitalization)
  Sender: FDA-Public Use
  Company Number: CA-ABBVIE-5475500

PATIENT
  Age: 83 Year
  Sex: Male
  Weight: 107 kg

DRUGS (1)
  1. LUPRON DEPOT [Suspect]
     Active Substance: LEUPROLIDE ACETATE
     Indication: Prostate cancer
     Route: 030
     Dates: start: 20200526

REACTIONS (3)
  - Calculus bladder [Recovered/Resolved]
  - Spinal pain [Unknown]
  - Back pain [Unknown]

NARRATIVE: CASE EVENT DATE: 20230822
